FAERS Safety Report 8005730-0 (Version None)
Quarter: 2011Q4

REPORT INFORMATION
  Report Type: 
  Country: None (occurrence: None)
  Receive Date: 20111223
  Receipt Date: 20111220
  Transmission Date: 20120403
  Serious: Yes (Life-Threatening, Hospitalization, Disabling, Other)
  Sender: FDA-Public Use
  Company Number: PHHY2011GB95898

PATIENT
  Age: 66 Year
  Sex: Male

DRUGS (8)
  1. AMITRIPTYLINE [Concomitant]
  2. ATENOLOL [Concomitant]
  3. ALLOPURINOL [Concomitant]
  4. PREDNISOLONE [Concomitant]
  5. ERYTHROMYCIN [Suspect]
     Indication: WOUND INFECTION
     Dosage: 250 MG, QID
     Route: 048
     Dates: start: 20110524, end: 20110602
  6. LEFLUNOMIDE [Suspect]
     Indication: SERONEGATIVE ARTHRITIS
     Dosage: 10 MG, QD
     Route: 048
     Dates: start: 20110427, end: 20110603
  7. DIHYDROCODEINE BITARTRATE INJ [Concomitant]
  8. METHOTREXATE [Suspect]
     Indication: RHEUMATOID ARTHRITIS
     Dosage: 20 MG, QW
     Route: 048
     Dates: end: 20110516

REACTIONS (13)
  - ERYTHEMA MULTIFORME [None]
  - LETHARGY [None]
  - DYSPNOEA [None]
  - HEPATIC INFARCTION [None]
  - HEPATIC FAILURE [None]
  - RESPIRATORY FAILURE [None]
  - RENAL FAILURE ACUTE [None]
  - VASCULITIC RASH [None]
  - DELIRIUM [None]
  - SEPSIS [None]
  - HEPATIC FUNCTION ABNORMAL [None]
  - COAGULOPATHY [None]
  - GENERAL PHYSICAL HEALTH DETERIORATION [None]
